FAERS Safety Report 17685277 (Version 6)
Quarter: 2020Q4

REPORT INFORMATION
  Report Type: Spontaneous
  Country: US (occurrence: US)
  Receive Date: 20200420
  Receipt Date: 20201218
  Transmission Date: 20210113
  Serious: Yes (Other)
  Sender: FDA-Public Use
  Company Number: US-BAYER-2020-061051

PATIENT
  Sex: Male

DRUGS (4)
  1. JIVI [Suspect]
     Active Substance: DAMOCTOCOG ALFA PEGOL
     Indication: FACTOR VIII DEFICIENCY
     Dosage: 3000 U (+/-10%) TWICE WEEKLY
     Route: 042
     Dates: start: 201905
  2. JIVI [Suspect]
     Active Substance: DAMOCTOCOG ALFA PEGOL
     Indication: FACTOR VIII DEFICIENCY
     Dosage: 3000 U (+/-10%) TWICE WEEKLY
     Route: 042
     Dates: start: 201905
  3. JIVI [Suspect]
     Active Substance: DAMOCTOCOG ALFA PEGOL
     Indication: FACTOR VIII DEFICIENCY
     Dosage: 3000 U (+/-10%) TWICE WEEKLY, NO EXTRA DOSES NEEDED JUST REGULAR PROPHY DOSE
     Route: 042
     Dates: start: 201905
  4. JIVI [Suspect]
     Active Substance: DAMOCTOCOG ALFA PEGOL
     Indication: FACTOR VIII DEFICIENCY
     Dosage: 1 DOSE OF JIVI FOR THE BLEED ON HIS RIGHT HAND

REACTIONS (4)
  - Haemarthrosis [Unknown]
  - Haemarthrosis [Not Recovered/Not Resolved]
  - Haemorrhage [None]
  - Haemarthrosis [None]
